FAERS Safety Report 7335556-2 (Version None)
Quarter: 2011Q1

REPORT INFORMATION
  Report Type: 
  Country: None (occurrence: None)
  Receive Date: 20110307
  Receipt Date: 20110301
  Transmission Date: 20110831
  Serious: Yes (Other)
  Sender: FDA-Public Use
  Company Number: BR-PFIZER INC-2011045312

PATIENT
  Age: 42 Year
  Sex: Male
  Weight: 120 kg

DRUGS (2)
  1. TERRAMYCIN V CAP [Suspect]
     Indication: FURUNCLE
     Dosage: 500 MG, 2X/DAY (1 CAPSULE OF 500MG EVERY 12 HOURS)
     Route: 048
     Dates: start: 20110226, end: 20110227
  2. PRESS PLUS [Concomitant]
     Indication: HYPERTENSION
     Dosage: UNK

REACTIONS (15)
  - PENILE PAIN [None]
  - DYSPHAGIA [None]
  - WOUND SECRETION [None]
  - OROPHARYNGEAL PLAQUE [None]
  - ORAL PAIN [None]
  - PYREXIA [None]
  - PARAESTHESIA ORAL [None]
  - BLOOD BLISTER [None]
  - GENITAL BURNING SENSATION [None]
  - LISTLESS [None]
  - ORAL DISCOMFORT [None]
  - PENILE PLAQUE [None]
  - DIARRHOEA [None]
  - HYPOAESTHESIA ORAL [None]
  - PRURITUS GENITAL [None]
